FAERS Safety Report 8265773-9 (Version None)
Quarter: 2012Q2

REPORT INFORMATION
  Report Type: 
  Country: None (occurrence: None)
  Receive Date: 20120406
  Receipt Date: 20120402
  Transmission Date: 20120825
  Serious: Yes (Death, Hospitalization)
  Sender: FDA-Public Use
  Company Number: PHHY2011BR097398

PATIENT
  Age: 86 Year
  Sex: Male

DRUGS (4)
  1. FUROSEMIDE [Concomitant]
     Indication: HYPERTENSION
     Dosage: UNK UKN, UNK
  2. EXELON [Suspect]
     Indication: DEMENTIA ALZHEIMER'S TYPE
     Dosage: 9 MG/5 CM2, 1 PATCH A DAY
     Route: 062
     Dates: start: 20110101
  3. CARVEDILOL [Concomitant]
     Indication: CARDIAC DISORDER
     Dosage: UNK UKN, UNK
  4. LOSARTAN POTASSIUM [Suspect]
     Dosage: UNK UKN, UNK

REACTIONS (5)
  - DYSPNOEA [None]
  - PLEURAL EFFUSION [None]
  - SWELLING [None]
  - CARDIAC FAILURE [None]
  - INFECTION [None]
